FAERS Safety Report 23586183 (Version 5)
Quarter: 2024Q4

REPORT INFORMATION
  Report Type: Spontaneous
  Country: US (occurrence: US)
  Receive Date: 20240301
  Receipt Date: 20241226
  Transmission Date: 20250114
  Serious: Yes (Hospitalization, Other)
  Sender: PFIZER
  Company Number: US-PFIZER INC-202400052085

PATIENT
  Age: 57 Year
  Sex: Male
  Weight: 93 kg

DRUGS (6)
  1. NIRMATRELVIR\RITONAVIR [Interacting]
     Active Substance: NIRMATRELVIR\RITONAVIR
     Indication: COVID-19 treatment
     Dosage: UNK (TOTAL 7 DOSES)
  2. TACROLIMUS [Interacting]
     Active Substance: TACROLIMUS
     Indication: Immunosuppressant drug therapy
     Dosage: UNK
  3. ATORVASTATIN [Concomitant]
     Active Substance: ATORVASTATIN
     Dosage: UNK
  4. ALFUZOSIN [Concomitant]
     Active Substance: ALFUZOSIN
     Dosage: UNK
  5. MYCOPHENOLIC ACID [Concomitant]
     Active Substance: MYCOPHENOLIC ACID
     Indication: Immunosuppressant drug therapy
     Dosage: UNK
  6. ENALAPRIL [Concomitant]
     Active Substance: ENALAPRIL
     Indication: Nephropathy toxic
     Dosage: UNK

REACTIONS (4)
  - Drug interaction [Recovered/Resolved]
  - Drug level increased [Recovered/Resolved]
  - Toxicity to various agents [Recovered/Resolved]
  - Contraindicated product administered [Unknown]
